FAERS Safety Report 20470148 (Version 13)
Quarter: 2023Q2

REPORT INFORMATION
  Report Type: Other
  Country: CA (occurrence: None)
  Receive Date: 20220214
  Receipt Date: 20230420
  Transmission Date: 20230722
  Serious: Yes (Other)
  Sender: FDA-Public Use
  Company Number: CA-ROCHE-2248928

PATIENT
  Age: 44 Year
  Sex: Male
  Weight: 100 kg

DRUGS (8)
  1. OCREVUS [Suspect]
     Active Substance: OCRELIZUMAB
     Indication: Relapsing-remitting multiple sclerosis
     Dosage: 300 MG AT DAY 0 AND 14, THEN 600 MG EVERY 6 MONTH
     Route: 042
     Dates: start: 20190108
  2. SYNTHROID [Concomitant]
     Active Substance: LEVOTHYROXINE SODIUM
     Indication: Anxiety
  3. SYNTHROID [Concomitant]
     Active Substance: LEVOTHYROXINE SODIUM
     Indication: Blood pressure measurement
  4. SYNTHROID [Concomitant]
     Active Substance: LEVOTHYROXINE SODIUM
     Indication: Paraesthesia
  5. CITALOPRAM [Concomitant]
     Active Substance: CITALOPRAM HYDROBROMIDE
     Indication: Depression
  6. BUPROPION [Concomitant]
     Active Substance: BUPROPION
     Indication: Depression
  7. CLONAZEPAM [Concomitant]
     Active Substance: CLONAZEPAM
     Indication: Anxiety
  8. CLONAZEPAM [Concomitant]
     Active Substance: CLONAZEPAM
     Indication: Depression

REACTIONS (24)
  - Major depression [Unknown]
  - Ear pruritus [Recovered/Resolved]
  - Throat irritation [Recovered/Resolved]
  - Hot flush [Recovered/Resolved]
  - Dry mouth [Recovered/Resolved]
  - Infusion related reaction [Recovered/Resolved]
  - Paraesthesia [Not Recovered/Not Resolved]
  - Stress [Not Recovered/Not Resolved]
  - Visual impairment [Not Recovered/Not Resolved]
  - Infusion related reaction [Recovered/Resolved]
  - Stress [Not Recovered/Not Resolved]
  - Malaise [Unknown]
  - SARS-CoV-2 test positive [Not Recovered/Not Resolved]
  - Fatigue [Not Recovered/Not Resolved]
  - Malaise [Unknown]
  - Movement disorder [Unknown]
  - Anxiety [Not Recovered/Not Resolved]
  - Back pain [Not Recovered/Not Resolved]
  - Hypoaesthesia [Not Recovered/Not Resolved]
  - Amnesia [Not Recovered/Not Resolved]
  - Osteoarthritis [Unknown]
  - Blindness [Not Recovered/Not Resolved]
  - Hypoaesthesia [Not Recovered/Not Resolved]
  - Back pain [Not Recovered/Not Resolved]

NARRATIVE: CASE EVENT DATE: 20190108
